FAERS Safety Report 13946175 (Version 1)
Quarter: 2017Q3

REPORT INFORMATION
  Report Type: Spontaneous
  Country: FR (occurrence: FR)
  Receive Date: 20170907
  Receipt Date: 20170907
  Transmission Date: 20171128
  Serious: Yes (Hospitalization)
  Sender: FDA-Public Use
  Company Number: FR-MERCK KGAA-2025677

PATIENT
  Age: 68 Year
  Sex: Female

DRUGS (3)
  1. TEMESTA [Concomitant]
     Active Substance: LORAZEPAM
     Route: 065
  2. TEVETEN [Concomitant]
     Active Substance: EPROSARTAN MESYLATE
     Route: 065
  3. NOVOTHYROX [Suspect]
     Active Substance: LEVOTHYROXINE SODIUM
     Indication: HYPOTHYROIDISM
     Route: 065
     Dates: start: 201704

REACTIONS (3)
  - Pulmonary embolism [Not Recovered/Not Resolved]
  - Blood thyroid stimulating hormone increased [Unknown]
  - Fatigue [Unknown]

NARRATIVE: CASE EVENT DATE: 201706
